FAERS Safety Report 21702882 (Version 2)
Quarter: 2022Q4

REPORT INFORMATION
  Report Type: Spontaneous
  Country: RU (occurrence: RU)
  Receive Date: 20221209
  Receipt Date: 20221217
  Transmission Date: 20230113
  Serious: Yes (Hospitalization)
  Sender: FDA-Public Use
  Company Number: RU-drreddys-LIT/RUS/22/0157824

PATIENT
  Age: 13 Year
  Sex: Male
  Weight: 22.3 kg

DRUGS (5)
  1. ESOMEPRAZOLE [Suspect]
     Active Substance: ESOMEPRAZOLE
     Indication: Product used for unknown indication
  2. ESOMEPRAZOLE [Suspect]
     Active Substance: ESOMEPRAZOLE
  3. CYANOCOBALAMIN [Suspect]
     Active Substance: CYANOCOBALAMIN
     Indication: Product used for unknown indication
     Route: 058
  4. FOLIC ACID [Suspect]
     Active Substance: FOLIC ACID
     Indication: Product used for unknown indication
  5. MESALAMINE [Suspect]
     Active Substance: MESALAMINE
     Indication: Product used for unknown indication

REACTIONS (13)
  - Malabsorption [Recovering/Resolving]
  - Anaemia vitamin B12 deficiency [Recovering/Resolving]
  - Neuropathy vitamin B12 deficiency [Recovering/Resolving]
  - Short stature [Recovering/Resolving]
  - Hypovitaminosis [Recovering/Resolving]
  - Bacterial infection [Recovering/Resolving]
  - Ataxia [Recovering/Resolving]
  - Large intestine anastomosis [Recovering/Resolving]
  - Gastrooesophageal reflux disease [Recovering/Resolving]
  - Chronic gastritis [Recovering/Resolving]
  - Steatohepatitis [Recovering/Resolving]
  - Biliary tract disorder [Recovering/Resolving]
  - Pancreatic injury [Recovering/Resolving]
